FAERS Safety Report 4700974-5 (Version None)
Quarter: 2005Q2

REPORT INFORMATION
  Report Type: 
  Country: None (occurrence: None)
  Receive Date: 20050624
  Receipt Date: 20050609
  Transmission Date: 20051028
  Serious: Yes (Death, Hospitalization)
  Sender: FDA-Public Use
  Company Number: US-2005-005477

PATIENT
  Age: 60 Year
  Sex: Female

DRUGS (2)
  1. BETASERON [Suspect]
     Indication: MULTIPLE SCLEROSIS
     Dosage: SUBCUTANEOUS
     Route: 058
     Dates: start: 19941006
  2. AVONEX [Suspect]
     Dosage: INTRAMUSCULAR
     Route: 030

REACTIONS (3)
  - ANOXIC ENCEPHALOPATHY [None]
  - CARDIAC ARREST [None]
  - RESPIRATORY FAILURE [None]
